FAERS Safety Report 8117820-2 (Version None)
Quarter: 2011Q4

REPORT INFORMATION
  Report Type: 
  Country: None (occurrence: None)
  Receive Date: 20111227
  Receipt Date: 20111128
  Transmission Date: 20120403
  Serious: No
  Sender: FDA-Public Use
  Company Number: PHHY2011US69199

PATIENT
  Age: 47 Year
  Sex: Female

DRUGS (5)
  1. AMPHETAMINE SULFATE [Concomitant]
  2. COUMADIN [Concomitant]
  3. LORAZEPAM [Concomitant]
  4. GILENYA [Suspect]
     Indication: MULTIPLE SCLEROSIS
     Dosage: 0.5 MG, DAILY, ORAL
     Route: 048
     Dates: start: 20110629, end: 20110727
  5. FUROSEMIDE [Concomitant]

REACTIONS (7)
  - INSOMNIA [None]
  - SLUGGISHNESS [None]
  - TACHYCARDIA [None]
  - FATIGUE [None]
  - PALPITATIONS [None]
  - CHEST PAIN [None]
  - DYSPNOEA [None]
